FAERS Safety Report 7576206-X (Version None)
Quarter: 2011Q2

REPORT INFORMATION
  Report Type: 
  Country: None (occurrence: None)
  Receive Date: 20110628
  Receipt Date: 20110613
  Transmission Date: 20111010
  Serious: Yes (Hospitalization)
  Sender: FDA-Public Use
  Company Number: GB-BAYER-2011-052666

PATIENT
  Sex: Female

DRUGS (1)
  1. MAGNEVIST [Suspect]
     Indication: SCAN BRAIN
     Dosage: 8 ML, ONCE
     Dates: start: 20110610, end: 20110610

REACTIONS (3)
  - COUGH [None]
  - CONFUSIONAL STATE [None]
  - HYPOXIA [None]
